FAERS Safety Report 12744254 (Version 1)
Quarter: 2016Q3

REPORT INFORMATION
  Report Type: Spontaneous
  Country: PT (occurrence: PT)
  Receive Date: 20160914
  Receipt Date: 20160914
  Transmission Date: 20161109
  Serious: Yes (Other)
  Sender: FDA-Public Use
  Company Number: PT-ASTRAZENECA-2016SE95360

PATIENT
  Age: 25455 Day
  Sex: Male
  Weight: 84 kg

DRUGS (10)
  1. FORXIGA [Suspect]
     Active Substance: DAPAGLIFLOZIN
     Indication: TYPE 2 DIABETES MELLITUS
     Route: 048
     Dates: start: 20151002, end: 20151010
  2. METFORMIN [Concomitant]
     Active Substance: METFORMIN HYDROCHLORIDE
  3. RIVAROXABANO [Concomitant]
  4. ESPIRONOLACTONA [Concomitant]
     Active Substance: SPIRONOLACTONE
  5. FENOFIBRATO [Concomitant]
     Active Substance: FENOFIBRATE
  6. VALSARTAN. [Concomitant]
     Active Substance: VALSARTAN
  7. DIGOXINA [Concomitant]
     Active Substance: DIGOXIN
  8. CARVEDILOL. [Concomitant]
     Active Substance: CARVEDILOL
  9. FUROSEMIDA [Concomitant]
     Active Substance: FUROSEMIDE
  10. PANTOPRAZOL [Concomitant]
     Active Substance: PANTOPRAZOLE SODIUM

REACTIONS (4)
  - Malaise [Recovered/Resolved]
  - Rash erythematous [Recovered/Resolved]
  - Dizziness [Recovered/Resolved]
  - Feeling hot [Recovered/Resolved]

NARRATIVE: CASE EVENT DATE: 20151007
